FAERS Safety Report 14445904 (Version 1)
Quarter: 2018Q1

REPORT INFORMATION
  Report Type: Spontaneous
  Country: US (occurrence: US)
  Receive Date: 20180125
  Receipt Date: 20180125
  Transmission Date: 20180509
  Serious: No
  Sender: FDA-Public Use
  Company Number: None

PATIENT
  Age: 6 Year
  Sex: Male
  Weight: 44.1 kg

DRUGS (1)
  1. POLYETHYLENE GLYCOL 3350, NF POWDER FOR ORAL SOLUTION [Suspect]
     Active Substance: POLYETHYLENE GLYCOL 3350
     Indication: CONSTIPATION
     Route: 048
     Dates: start: 20170325, end: 20170330

REACTIONS (1)
  - Drug administered to patient of inappropriate age [None]

NARRATIVE: CASE EVENT DATE: 20170325
